FAERS Safety Report 9776023 (Version 1)
Quarter: 2013Q4

REPORT INFORMATION
  Report Type: Spontaneous
  Country: FR (occurrence: FR)
  Receive Date: 20131220
  Receipt Date: 20131220
  Transmission Date: 20140711
  Serious: Yes (Other)
  Sender: FDA-Public Use
  Company Number: FR-BRISTOL-MYERS SQUIBB COMPANY-19914753

PATIENT
  Age: 25 Year
  Sex: Female

DRUGS (6)
  1. VIDEX [Suspect]
     Indication: ANTIRETROVIRAL THERAPY
     Route: 048
     Dates: start: 1996, end: 200201
  2. REYATAZ [Suspect]
     Indication: ANTIRETROVIRAL THERAPY
     Dates: start: 200409
  3. ZERIT [Suspect]
     Indication: ANTIRETROVIRAL THERAPY
     Route: 048
     Dates: start: 1996, end: 200201
  4. VIREAD [Suspect]
     Indication: ANTIRETROVIRAL THERAPY
     Dates: start: 200409
  5. EPIVIR [Suspect]
     Indication: ANTIRETROVIRAL THERAPY
     Dates: start: 200409
  6. NORVIR [Suspect]
     Indication: ANTIRETROVIRAL THERAPY
     Dates: start: 200409

REACTIONS (3)
  - Lipodystrophy acquired [Not Recovered/Not Resolved]
  - Hepatic cirrhosis [Not Recovered/Not Resolved]
  - Portal hypertension [Not Recovered/Not Resolved]
